FAERS Safety Report 5769527-4 (Version None)
Quarter: 2008Q2

REPORT INFORMATION
  Report Type: 
  Country: None (occurrence: None)
  Receive Date: 20080612
  Receipt Date: 20080331
  Transmission Date: 20081010
  Serious: No
  Sender: FDA-Public Use
  Company Number: US-ABBOTT-08P-163-0445061-00

PATIENT
  Sex: Male
  Weight: 63.56 kg

DRUGS (6)
  1. HUMIRA [Suspect]
     Indication: ANKYLOSING SPONDYLITIS
     Route: 058
     Dates: start: 20080110
  2. MELOXICAM [Concomitant]
     Indication: TENDONITIS
     Route: 048
     Dates: start: 20050101
  3. MODAFINIL [Concomitant]
     Indication: FATIGUE
     Route: 048
     Dates: start: 20080201
  4. ZOLPIDEM TARTRATE [Concomitant]
     Indication: INSOMNIA
     Route: 048
     Dates: start: 20080201
  5. PROPACET 100 [Concomitant]
     Indication: PAIN
     Route: 048
     Dates: start: 20080201
  6. LORTAB [Concomitant]
     Indication: PAIN
     Route: 048
     Dates: start: 20080201

REACTIONS (2)
  - BLOOD URINE PRESENT [None]
  - URINARY TRACT INFECTION [None]
